FAERS Safety Report 8897168 (Version 1)
Quarter: 2012Q4

REPORT INFORMATION
  Report Type: 
  Country: US (occurrence: US)
  Receive Date: 20121108
  Receipt Date: 20121108
  Transmission Date: 20130627
  Serious: No
  Sender: FDA-Public Use
  Company Number: US-AMGEN-USASP2012029510

PATIENT
  Age: 69 Year
  Sex: Female
  Weight: 90.25 kg

DRUGS (8)
  1. ENBREL [Suspect]
     Indication: PRODUCT USED FOR UNKNOWN INDICATION
     Dosage: 25 mg, 2 times/wk
  2. CELEBREX [Concomitant]
     Dosage: 100 mg, UNK
  3. ARAVA [Concomitant]
     Dosage: 10 mg, UNK
  4. ACTONEL [Concomitant]
     Dosage: 150 mg, UNK
  5. ZANTAC [Concomitant]
  6. VITAMIN D /00107901/ [Concomitant]
     Dosage: 1000 IU, UNK
  7. FOLIC ACID [Concomitant]
  8. ESSENTIAL [Concomitant]

REACTIONS (1)
  - Pruritus [Unknown]
